FAERS Safety Report 7526016-4 (Version None)
Quarter: 2011Q2

REPORT INFORMATION
  Report Type: 
  Country: None (occurrence: None)
  Receive Date: 20110606
  Receipt Date: 20110601
  Transmission Date: 20111010
  Serious: Yes (Life-Threatening, Hospitalization, Other)
  Sender: FDA-Public Use
  Company Number: US-ASTRAZENECA-2011SE33612

PATIENT
  Age: 48 Year
  Sex: Female
  Weight: 113.4 kg

DRUGS (8)
  1. VALIUM [Suspect]
  2. SEROQUEL [Suspect]
     Route: 048
     Dates: start: 20090101, end: 20110406
  3. ESTRADIOL [Concomitant]
  4. VITAMIN B-12 [Concomitant]
  5. LEXAPRO [Concomitant]
  6. SEROQUEL [Suspect]
     Indication: BIPOLAR DISORDER
     Route: 048
     Dates: start: 20060101, end: 20090101
  7. EFFEXOR XR [Concomitant]
  8. PERCOCET [Concomitant]
     Indication: SCAR PAIN

REACTIONS (10)
  - SELF-MEDICATION [None]
  - OVERDOSE [None]
  - GLUCOSE TOLERANCE IMPAIRED [None]
  - AGGRESSION [None]
  - SUICIDE ATTEMPT [None]
  - ALCOHOL ABUSE [None]
  - LOSS OF CONSCIOUSNESS [None]
  - HYPOTENSION [None]
  - INSOMNIA [None]
  - HYPERSOMNIA [None]
